FAERS Safety Report 10653008 (Version 1)
Quarter: 2014Q4

REPORT INFORMATION
  Report Type: Spontaneous
  Country: US (occurrence: US)
  Receive Date: 20141215
  Receipt Date: 20141215
  Transmission Date: 20150529
  Serious: Yes (Hospitalization)
  Sender: FDA-Public Use
  Company Number: US-MYLANLABS-2014M1013938

PATIENT

DRUGS (2)
  1. HYDROCHLOROTHIAZIDE/LISINOPRIL [Suspect]
     Active Substance: HYDROCHLOROTHIAZIDE\LISINOPRIL
     Indication: HYPERTENSION
     Dosage: 20/25 TAKEN DAILY
     Route: 065
  2. NABUMETONE. [Suspect]
     Active Substance: NABUMETONE
     Indication: OSTEOARTHRITIS
     Dosage: 1000 MG, QD
     Route: 065

REACTIONS (6)
  - Acute kidney injury [Recovering/Resolving]
  - Metabolic acidosis [Unknown]
  - Hyperkalaemia [Unknown]
  - Fluid overload [None]
  - Anaemia [None]
  - Hypotension [None]
